FAERS Safety Report 4421584-3 (Version None)
Quarter: 2004Q3

REPORT INFORMATION
  Report Type: 
  Country: None (occurrence: None)
  Receive Date: 20040809
  Receipt Date: 20040809
  Transmission Date: 20050211
  Serious: Yes (Hospitalization)
  Sender: FDA-Public Use
  Company Number: None

PATIENT
  Age: 75 Year
  Sex: Male
  Weight: 73.4827 kg

DRUGS (7)
  1. ASPIRIN [Suspect]
     Indication: CEREBROVASCULAR ACCIDENT PROPHYLAXIS
  2. NAPROXEN [Suspect]
     Indication: PAIN
  3. WARFARIN SODIUM [Suspect]
  4. IBUPROFEN [Suspect]
  5. DIOVAN [Concomitant]
  6. DIGOXIN [Concomitant]
  7. ALBUTEROL [Concomitant]

REACTIONS (3)
  - ABDOMINAL PAIN UPPER [None]
  - GASTRIC ULCER [None]
  - HAEMATEMESIS [None]
